FAERS Safety Report 9017165 (Version 1)
Quarter: 2013Q1

REPORT INFORMATION
  Report Type: Spontaneous
  Country: US (occurrence: US)
  Receive Date: 20130117
  Receipt Date: 20130117
  Transmission Date: 20140127
  Serious: Yes (Hospitalization)
  Sender: FDA-Public Use
  Company Number: US-BAYER-2013-005098

PATIENT
  Age: 43 Year
  Sex: Female
  Weight: 103.4 kg

DRUGS (31)
  1. OCELLA [Suspect]
  2. STEROIDS [Concomitant]
     Dosage: UNK
     Dates: start: 201209
  3. ENEMAS [Concomitant]
  4. BUTALBITAL, ACETAMINOPHEN + CAFFEINE [Concomitant]
     Dosage: 50-325-40 AS NEEDED
  5. TORADOL [Concomitant]
     Dosage: 30 MG, UNK
     Route: 042
  6. ZOFRAN [Concomitant]
     Dosage: 4 MG, UNK
     Route: 042
  7. ACYCLOVIR [ACICLOVIR] [Concomitant]
  8. VERSED [Concomitant]
     Dosage: 2 MG, UNK
     Dates: start: 20121119
  9. DILAUDID [Concomitant]
     Dosage: PCA (INTERPRETED AS PATIENT CONTROLLED ANALGESIA)
     Dates: start: 20121119
  10. ANCEF [Concomitant]
     Dosage: 1 G, UNK
     Route: 042
     Dates: start: 20121119
  11. FENTANYL [Concomitant]
     Dosage: 250 ?G, UNK
     Dates: start: 20121119
  12. LIDOCAINE [Concomitant]
     Dosage: 60 MG, UNK
     Dates: start: 20121119
  13. PROPOFOL [Concomitant]
     Dosage: 200 MG, UNK
     Dates: start: 20121119
  14. SUCCINYLCHOLINE CHLORIDE [Concomitant]
     Dosage: 100 MG, UNK
     Dates: start: 20121119
  15. ROCURONIUM [Concomitant]
     Dosage: 40 MG, UNK
     Dates: start: 20121119
  16. ROBINUL-NEOSTIGMINE [Concomitant]
     Dosage: 0.4/2 MG
     Dates: start: 20121119
  17. OFIRIMEV (INTERPRETED AS OFIRMEV) [Concomitant]
     Dosage: 1 G, UNK
     Dates: start: 20121119
  18. SEVOFLURANE [Concomitant]
     Dosage: UNK
     Dates: start: 20121119
  19. LACTATED RINGER^S [Concomitant]
     Dosage: 1000 ML, UNK
     Dates: start: 20121119
  20. BENICAR HCT [Concomitant]
     Dosage: 40/25 MG Q DAY
  21. FIORICET [Concomitant]
     Dosage: UNK UNK, PRN
  22. OMEPRAZOLE [Concomitant]
     Dosage: 40 MG, BID
     Route: 048
  23. ANAPROX [Concomitant]
     Dosage: 550 MG, BID, PRN
     Route: 048
  24. LORTAB [Concomitant]
     Dosage: 7.5 MG, PRN
  25. GLYBURIDE/METFORMIN [Concomitant]
     Dosage: 5/500 MG BID
  26. MORPHINE [Concomitant]
     Dosage: 4 MG, PRN
  27. PHENERGAN [Concomitant]
     Dosage: UNK UNK, PRN
  28. NORTRIPTYLINE [Concomitant]
     Indication: MIGRAINE
     Dosage: 25 MG, PRN
  29. REGULAR INSULIN [Concomitant]
     Indication: DIABETES MELLITUS
  30. CLINDAMYCIN [Concomitant]
     Indication: SUBCUTANEOUS ABSCESS
  31. HYDROCHLOROTHIAZIDE [Concomitant]

REACTIONS (1)
  - Pulmonary embolism [None]
